FAERS Safety Report 12273404 (Version 1)
Quarter: 2016Q2

REPORT INFORMATION
  Report Type: Spontaneous
  Country: US (occurrence: US)
  Receive Date: 20160415
  Receipt Date: 20160415
  Transmission Date: 20160815
  Serious: Yes (Other)
  Sender: FDA-Public Use
  Company Number: US-TEVA-647763USA

PATIENT
  Age: 7 Year
  Sex: Female

DRUGS (2)
  1. ARIPIPRAZOLE. [Suspect]
     Active Substance: ARIPIPRAZOLE
     Indication: BIPOLAR I DISORDER
     Dosage: 4 MILLIGRAM DAILY; 1 TABLET AT 7 AM AND ANOTHER DOSE AT 7PM
     Dates: start: 20160218
  2. ARIPIPRAZOLE. [Suspect]
     Active Substance: ARIPIPRAZOLE
     Indication: BIPOLAR DISORDER

REACTIONS (16)
  - Restlessness [Unknown]
  - Cellulitis [Recovering/Resolving]
  - Skin exfoliation [Unknown]
  - Dermatillomania [Unknown]
  - Off label use [Unknown]
  - Obsessive-compulsive disorder [Unknown]
  - Skin haemorrhage [Unknown]
  - Screaming [Unknown]
  - Attention deficit/hyperactivity disorder [Unknown]
  - Sleep disorder [Unknown]
  - Drug ineffective [Unknown]
  - Mood swings [Unknown]
  - Pruritus [Unknown]
  - Product substitution issue [Unknown]
  - Inappropriate affect [Unknown]
  - Impulsive behaviour [Unknown]

NARRATIVE: CASE EVENT DATE: 20160220
